FAERS Safety Report 4861170-4 (Version None)
Quarter: 2005Q4

REPORT INFORMATION
  Report Type: 
  Country: None (occurrence: None)
  Receive Date: 20051216
  Receipt Date: 20051128
  Transmission Date: 20060501
  Serious: Yes (Life-Threatening)
  Sender: FDA-Public Use
  Company Number: 200510805BNE

PATIENT
  Age: 85 Year
  Sex: Female

DRUGS (25)
  1. CIPROFLOXACIN [Suspect]
     Indication: ACINETOBACTER INFECTION
     Dosage: 750 MG, TOTAL DAILY, ORAL
     Route: 048
     Dates: start: 20051110, end: 20051111
  2. PARACETAMOL [Concomitant]
  3. ORAMORPH SR [Concomitant]
  4. AMLODIPINE [Concomitant]
  5. SIMVASTATIN [Concomitant]
  6. BENDROFLUMETHIAZIDE [Concomitant]
  7. OXYCONTIN [Concomitant]
  8. ASPIRIN [Concomitant]
  9. LACTULOSE [Concomitant]
  10. SENNA [Concomitant]
  11. CLOTRIMAZOLE [Concomitant]
  12. TRAMADOL HCL [Concomitant]
  13. MORPHINE SULFATE [Concomitant]
  14. CYCLIZINE [Concomitant]
  15. FRAGMIN [Concomitant]
  16. CEFUROXIME [Concomitant]
  17. DEXAMETHASONE [Concomitant]
  18. KAOLIN [Concomitant]
  19. HUMAN ACTRAPID [Concomitant]
  20. HUMULIN S [Concomitant]
  21. MOVICOL [Concomitant]
  22. AMOXICILLIN AND CLAVULANATE POTASSIUM [Concomitant]
  23. ONDANSETRON [Concomitant]
  24. TRIMETHOPRIM [Concomitant]
  25. ANUSOL [Concomitant]

REACTIONS (2)
  - ANGIONEUROTIC OEDEMA [None]
  - RALES [None]
